FAERS Safety Report 5460894-8 (Version None)
Quarter: 2007Q3

REPORT INFORMATION
  Report Type: 
  Country: None (occurrence: None)
  Receive Date: 20070827
  Receipt Date: 20070417
  Transmission Date: 20080115
  Serious: Yes (Other)
  Sender: FDA-Public Use
  Company Number: 2007031173

PATIENT
  Sex: Female

DRUGS (1)
  1. VFEND [Suspect]
     Dosage: 200 MG (100 MG, 2 IN 1 D)

REACTIONS (2)
  - DIZZINESS [None]
  - VISUAL DISTURBANCE [None]
